FAERS Safety Report 9522557 (Version 2)
Quarter: 2014Q4

REPORT INFORMATION
  Report Type: Spontaneous
  Country: US (occurrence: US)
  Receive Date: 20130913
  Receipt Date: 20141229
  Transmission Date: 20150529
  Serious: Yes (Other)
  Sender: FDA-Public Use
  Company Number: US-BAYER-2013-110602

PATIENT
  Age: 23 Year
  Sex: Female

DRUGS (1)
  1. MIRENA [Suspect]
     Active Substance: LEVONORGESTREL
     Indication: CONTRACEPTION
     Dosage: 20 MCG/24HR, CONT
     Route: 015
     Dates: start: 20090824, end: 20121226

REACTIONS (9)
  - Uterine perforation [None]
  - Emotional distress [None]
  - Medical device discomfort [None]
  - Procedural pain [None]
  - Medical device complication [None]
  - Pain [None]
  - Medical device pain [None]
  - Injury [None]
  - Scar [None]

NARRATIVE: CASE EVENT DATE: 20121226
